FAERS Safety Report 14436968 (Version 1)
Quarter: 2018Q1

REPORT INFORMATION
  Report Type: Spontaneous
  Country: US (occurrence: US)
  Receive Date: 20180125
  Receipt Date: 20180125
  Transmission Date: 20180509
  Serious: No
  Sender: FDA-Public Use
  Company Number: None

PATIENT
  Age: 64 Year
  Sex: Male
  Weight: 108.86 kg

DRUGS (2)
  1. FLUOCINONIDE 0.05% [Suspect]
     Active Substance: FLUOCINONIDE
     Indication: RASH
  2. AMMONIUM LACTATE 12% [Suspect]
     Active Substance: AMMONIUM LACTATE
     Indication: RASH
     Route: 061
     Dates: start: 20171201, end: 20180122

REACTIONS (1)
  - Pityriasis rubra pilaris [None]

NARRATIVE: CASE EVENT DATE: 20171216
